FAERS Safety Report 8947459 (Version 1)
Quarter: 2012Q4

REPORT INFORMATION
  Report Type: 
  Country: US (occurrence: US)
  Receive Date: 20121205
  Receipt Date: 20121205
  Transmission Date: 20130627
  Serious: Yes (Other)
  Sender: FDA-Public Use
  Company Number: US-ASTRAZENECA-2012SE89629

PATIENT
  Age: 41 Year
  Sex: Female
  Weight: 92.5 kg

DRUGS (3)
  1. NEXIUM [Suspect]
     Indication: GASTROOESOPHAGEAL REFLUX DISEASE
     Dosage: 2-3 TIMES A DAY AS NEEDED
     Route: 048
     Dates: start: 2000, end: 2005
  2. NEXIUM [Suspect]
     Indication: HYPERCHLORHYDRIA
     Dosage: 2-3 TIMES A DAY AS NEEDED
     Route: 048
     Dates: start: 2000, end: 2005
  3. POTASSIUM [Concomitant]

REACTIONS (3)
  - Spinal fracture [Unknown]
  - Tooth fracture [Unknown]
  - Intentional drug misuse [Unknown]
